FAERS Safety Report 6571952-9 (Version None)
Quarter: 2010Q1

REPORT INFORMATION
  Report Type: 
  Country: None (occurrence: None)
  Receive Date: 20100205
  Receipt Date: 20091218
  Transmission Date: 20100710
  Serious: Yes (Hospitalization)
  Sender: FDA-Public Use
  Company Number: FR-ROCHE-683376

PATIENT
  Age: 51 Year
  Sex: Female

DRUGS (6)
  1. TRASTUZUMAB [Suspect]
     Indication: BREAST CANCER
     Dosage: FORM: INTRAVENOUS INFUSION, FIRST CYCLE
     Route: 041
     Dates: start: 20090702, end: 20090702
  2. TRASTUZUMAB [Suspect]
     Dosage: EIGHT CYCLE
     Route: 041
     Dates: start: 20091203, end: 20091203
  3. DOCETAXEL [Suspect]
     Indication: BREAST CANCER
     Dosage: FORM: INTRAVENOUS INFUSION, FIRST CYCLE
     Route: 041
     Dates: start: 20091001, end: 20091001
  4. DOCETAXEL [Suspect]
     Dosage: THIRD CYCLE
     Route: 041
     Dates: start: 20091203, end: 20091203
  5. CYCLOPHOSPHAMIDE [Concomitant]
     Indication: BREAST CANCER
     Route: 042
     Dates: start: 20090702, end: 20090903
  6. EPIRUBICIN [Concomitant]
     Indication: BREAST CANCER
     Route: 042
     Dates: start: 20090702, end: 20090903

REACTIONS (3)
  - CIRCULATORY COLLAPSE [None]
  - LEUKOPENIA [None]
  - NEUTROPENIA [None]
